FAERS Safety Report 7689889-0 (Version None)
Quarter: 2011Q3

REPORT INFORMATION
  Report Type: 
  Country: None (occurrence: None)
  Receive Date: 20110818
  Receipt Date: 20110809
  Transmission Date: 20111222
  Serious: No
  Sender: FDA-Public Use
  Company Number: US-BIOGENIDEC-2010BI038069

PATIENT
  Sex: Female

DRUGS (2)
  1. TYSABRI [Suspect]
     Indication: MULTIPLE SCLEROSIS
     Route: 042
     Dates: start: 20090528, end: 20101122
  2. BENADRYL [Concomitant]
     Indication: PREMEDICATION
     Route: 048

REACTIONS (7)
  - INFUSION RELATED REACTION [None]
  - ADVERSE DRUG REACTION [None]
  - ASTHENIA [None]
  - MOBILITY DECREASED [None]
  - MULTIPLE ALLERGIES [None]
  - RETINOPATHY [None]
  - HYPERSENSITIVITY [None]
